FAERS Safety Report 6027283-9 (Version None)
Quarter: 2008Q4

REPORT INFORMATION
  Report Type: 
  Country: None (occurrence: None)
  Receive Date: 20081231
  Receipt Date: 20081231
  Transmission Date: 20090506
  Serious: Yes (Disabling, Other)
  Sender: FDA-Public Use
  Company Number: None

PATIENT
  Sex: Female
  Weight: 70.3075 kg

DRUGS (1)
  1. LEVAQUIN [Suspect]
     Indication: SINUSITIS
     Dosage: 1 A DAY 14 DAYS PO
     Route: 048
     Dates: start: 20030101, end: 20080101

REACTIONS (7)
  - ARTHRALGIA [None]
  - CONTUSION [None]
  - INFLAMMATION [None]
  - PAIN [None]
  - PATELLOFEMORAL PAIN SYNDROME [None]
  - TENDON RUPTURE [None]
  - TENDONITIS [None]
